FAERS Safety Report 4701718-3 (Version None)
Quarter: 2005Q2

REPORT INFORMATION
  Report Type: 
  Country: None (occurrence: None)
  Receive Date: 20050627
  Receipt Date: 20050616
  Transmission Date: 20051028
  Serious: Yes (Hospitalization, Other)
  Sender: FDA-Public Use
  Company Number: 2005080004

PATIENT
  Sex: Male

DRUGS (5)
  1. ALDACTONE [Suspect]
     Indication: ILL-DEFINED DISORDER
     Dosage: 25 MG (25 MG, 1 IN 1 D), ORAL
     Route: 048
     Dates: end: 20050414
  2. CIPROFLOXACIN [Suspect]
     Indication: URINARY TRACT INFECTION
     Dosage: ORAL
     Route: 048
     Dates: start: 20050409, end: 20050414
  3. TOREM                         (TORASEMIDE) [Suspect]
     Indication: ILL-DEFINED DISORDER
     Dosage: 10 MG (10 MG, 1 IN 1 D), ORAL
     Route: 048
  4. CONVERSUM                         (PERINDOPRIL) [Suspect]
     Indication: ILL-DEFINED DISORDER
     Dosage: 8 MG 1 IN 1 D, ORAL
     Route: 048
     Dates: end: 20050414
  5. ALLOPURINOL [Concomitant]

REACTIONS (8)
  - ACUTE PRERENAL FAILURE [None]
  - ARRHYTHMIA [None]
  - DEHYDRATION [None]
  - HYPERTENSION [None]
  - IATROGENIC INJURY [None]
  - OLIGURIA [None]
  - RENAL CYST [None]
  - URINARY TRACT INFECTION [None]
